FAERS Safety Report 8276096 (Version 3)
Quarter: 2014Q2

REPORT INFORMATION
  Report Type: Report from Study
  Country: US (occurrence: US)
  Receive Date: 20111206
  Receipt Date: 20140620
  Transmission Date: 20141212
  Serious: Yes (Hospitalization)
  Sender: FDA-Public Use
  Company Number: US-CELGENEUS-163-21880-11113835

PATIENT
  Age: 61 Year
  Sex: Male
  Weight: 82.45 kg

DRUGS (37)
  1. REVLIMID [Suspect]
     Indication: PLASMA CELL MYELOMA
     Dosage: 25 MILLIGRAM
     Route: 048
     Dates: start: 20110704, end: 20111020
  2. NORMAL SALINE [Concomitant]
     Indication: PRODUCT USED FOR UNKNOWN INDICATION
     Dosage: 100 MILLIGRAM
     Dates: start: 20111115
  3. LIDOCAINE [Concomitant]
     Indication: PRODUCT USED FOR UNKNOWN INDICATION
     Dosage: .1 MILLILITER
     Route: 058
     Dates: start: 20111115, end: 20111115
  4. FAMOTIDINE [Concomitant]
     Indication: PRODUCT USED FOR UNKNOWN INDICATION
     Dosage: 20 MILLIGRAM
     Route: 048
     Dates: start: 20111115, end: 20111115
  5. FAMOTIDINE [Concomitant]
     Dosage: 20 MILLIGRAM
     Route: 048
     Dates: start: 20111116
  6. FAMOTIDINE [Concomitant]
     Dosage: 20 MILLIGRAM
     Route: 048
     Dates: start: 20111117, end: 20111120
  7. FENTANYL CITRATE [Concomitant]
     Indication: PRODUCT USED FOR UNKNOWN INDICATION
     Dosage: 50 MICROGRAM
     Route: 041
     Dates: start: 20111115, end: 20111115
  8. LACTATED RINGERS [Concomitant]
     Indication: PRODUCT USED FOR UNKNOWN INDICATION
     Dosage: 100 ML/HR
     Route: 041
     Dates: start: 20111115, end: 20111115
  9. LACTATED RINGERS [Concomitant]
     Dosage: 50ML/HR
     Route: 041
     Dates: start: 20111115
  10. MIDAZOLAM [Concomitant]
     Indication: PRODUCT USED FOR UNKNOWN INDICATION
     Dosage: 2 MILLIGRAM
     Route: 041
     Dates: start: 20111115, end: 20111115
  11. CEFAZOLIN [Concomitant]
     Indication: PRODUCT USED FOR UNKNOWN INDICATION
     Dosage: 2 GRAM
     Route: 041
     Dates: start: 20111115, end: 20111115
  12. NALOXONE [Concomitant]
     Indication: PRODUCT USED FOR UNKNOWN INDICATION
     Dosage: .1 MILLIGRAM
     Route: 041
     Dates: start: 20111115, end: 20111115
  13. NALOXONE [Concomitant]
     Dosage: .4 MILLIGRAM
     Route: 041
     Dates: start: 20111115, end: 20111120
  14. FLUMAZENIL [Concomitant]
     Indication: PRODUCT USED FOR UNKNOWN INDICATION
     Dosage: .2 MILLIGRAM
     Route: 041
     Dates: start: 20111115, end: 20111115
  15. PROMETHAZINE [Concomitant]
     Indication: PRODUCT USED FOR UNKNOWN INDICATION
     Dosage: 12.5 MILLIGRAM
     Route: 041
     Dates: start: 20111115, end: 20111115
  16. ACETAMINOPHEN [Concomitant]
     Indication: PRODUCT USED FOR UNKNOWN INDICATION
     Dosage: 1000 MILLIGRAM
     Route: 041
     Dates: start: 20111115, end: 20111115
  17. ACETAMINOPHEN [Concomitant]
     Dosage: 650 MILLIGRAM
     Route: 048
     Dates: start: 20111115, end: 20111120
  18. THERA-M WITH IRON [Concomitant]
     Indication: PRODUCT USED FOR UNKNOWN INDICATION
     Dosage: 1 TABLET
     Route: 048
     Dates: start: 20111115, end: 20111120
  19. SERTRALINE [Concomitant]
     Indication: PRODUCT USED FOR UNKNOWN INDICATION
     Dosage: 25 MILLIGRAM
     Route: 048
     Dates: start: 20111116, end: 20111120
  20. SIMVASTATIN [Concomitant]
     Indication: PRODUCT USED FOR UNKNOWN INDICATION
     Dosage: 40 MILLIGRAM
     Route: 048
     Dates: start: 20111115, end: 20111120
  21. TERAZOSIN [Concomitant]
     Indication: PRODUCT USED FOR UNKNOWN INDICATION
     Dosage: 5 MILLIGRAM
     Route: 048
     Dates: start: 20111115, end: 20111119
  22. OPIUM-BELLADONA [Concomitant]
     Indication: PRODUCT USED FOR UNKNOWN INDICATION
     Dosage: 1
     Route: 054
     Dates: start: 20111115, end: 20111120
  23. ONDANSETRON [Concomitant]
     Indication: PRODUCT USED FOR UNKNOWN INDICATION
     Dosage: 4 TO 7MG OVER 30 SECONDS
     Route: 041
     Dates: start: 20111115, end: 20111120
  24. DIPHENHYDRAMINE [Concomitant]
     Indication: PRODUCT USED FOR UNKNOWN INDICATION
     Dosage: 12.5 MILLIGRAM
     Route: 041
     Dates: start: 20111115, end: 20111120
  25. MAGNESIUM HYDROXIDE [Concomitant]
     Indication: PRODUCT USED FOR UNKNOWN INDICATION
     Dosage: 30 MILLILITER
     Route: 048
     Dates: start: 20111115, end: 20111120
  26. DOCUSATE SODIUM [Concomitant]
     Indication: PRODUCT USED FOR UNKNOWN INDICATION
     Dosage: 100 MILLIGRAM
     Route: 048
     Dates: start: 20111115, end: 20111120
  27. BISACODYL [Concomitant]
     Indication: PRODUCT USED FOR UNKNOWN INDICATION
     Dosage: 5 MILLIGRAM
     Route: 048
     Dates: start: 20111115, end: 20111120
  28. BISACODYL [Concomitant]
     Dosage: 10 MILLIGRAM
     Route: 054
     Dates: start: 20111118, end: 20111120
  29. LORAZEPAM [Concomitant]
     Indication: PRODUCT USED FOR UNKNOWN INDICATION
     Dosage: 2MG/MIN
     Route: 041
     Dates: start: 20111115, end: 20111120
  30. SODIUM CHLORIDE WITH POTASSIUM CHLORIDE [Concomitant]
     Indication: PRODUCT USED FOR UNKNOWN INDICATION
     Dosage: 1000ML/20MEQ - 125 ML/HR
     Route: 041
     Dates: start: 20111115, end: 20111116
  31. SODIUM CHLORIDE WITH POTASSIUM CHLORIDE [Concomitant]
     Dosage: 1000ML/20MEQ - 125 ML/HR
     Route: 041
     Dates: start: 20111116, end: 20111119
  32. HYDROMORPHONE [Concomitant]
     Indication: PRODUCT USED FOR UNKNOWN INDICATION
     Dosage: .5 MILLIGRAM
     Route: 041
     Dates: start: 20111115, end: 20111115
  33. HYDROMORPHONE [Concomitant]
     Route: 041
     Dates: start: 20111115, end: 20111116
  34. HYDROMORPHONE [Concomitant]
     Route: 041
     Dates: start: 20111116, end: 20111117
  35. HYDROMORPHONE [Concomitant]
     Route: 041
     Dates: start: 20111117, end: 20111119
  36. HYDROMORPHONE [Concomitant]
     Dosage: .5 MILLIGRAM
     Route: 041
     Dates: start: 20111119, end: 20111120
  37. HEPARIN [Concomitant]
     Indication: PRODUCT USED FOR UNKNOWN INDICATION
     Dosage: 5000 UNITS
     Route: 058
     Dates: start: 20111118, end: 20111120

REACTIONS (1)
  - Transitional cell carcinoma [Unknown]
